FAERS Safety Report 9230421 (Version 1)
Quarter: 2013Q2

REPORT INFORMATION
  Report Type: Spontaneous
  Country: US (occurrence: US)
  Receive Date: 20130415
  Receipt Date: 20130415
  Transmission Date: 20140414
  Serious: Yes (Hospitalization, Other)
  Sender: FDA-Public Use
  Company Number: US-PFIZER INC-2013117792

PATIENT
  Age: 56 Year
  Sex: Female
  Weight: 81.63 kg

DRUGS (5)
  1. LYRICA [Suspect]
     Indication: DIABETES MELLITUS
     Dosage: 75 MG, 2X/DAY
     Dates: end: 2009
  2. LYRICA [Suspect]
     Dosage: 75 MG, 2X/DAY
     Dates: end: 201212
  3. NOVOLOG [Concomitant]
     Indication: DIABETES MELLITUS
     Dosage: 12 TO 18 UNITS, 3X/DAY
  4. COREG [Concomitant]
     Dosage: 12.5 MG, 2X/DAY
  5. COUMADIN [Concomitant]
     Dosage: UNK

REACTIONS (1)
  - Cerebrovascular accident [Unknown]
